FAERS Safety Report 24205684 (Version 1)
Quarter: 2024Q3

REPORT INFORMATION
  Report Type: Other
  Country: CN (occurrence: CN)
  Receive Date: 20240813
  Receipt Date: 20240813
  Transmission Date: 20241017
  Serious: Yes (Hospitalization, Other)
  Sender: TIME CAPS
  Company Number: CN-Time-Cap Labs, Inc.-2160355

PATIENT
  Age: 50 Year
  Sex: Female

DRUGS (1)
  1. NITROGLYCERIN [Suspect]
     Active Substance: NITROGLYCERIN

REACTIONS (3)
  - Syncope [Recovered/Resolved]
  - Cardiac arrest [Recovered/Resolved]
  - Paroxysmal atrioventricular block [Recovered/Resolved]
